FAERS Safety Report 4539265-4 (Version None)
Quarter: 2004Q4

REPORT INFORMATION
  Report Type: 
  Country: None (occurrence: None)
  Receive Date: 20041228
  Receipt Date: 20041217
  Transmission Date: 20050328
  Serious: Yes (Hospitalization)
  Sender: FDA-Public Use
  Company Number: JP-JNJFOC-20041004725

PATIENT
  Sex: Female
  Weight: 52 kg

DRUGS (13)
  1. REMICADE [Suspect]
  2. REMICADE [Suspect]
  3. REMICADE [Suspect]
     Dosage: 150MG
  4. REMICADE [Suspect]
  5. REMICADE [Suspect]
     Indication: RHEUMATOID ARTHRITIS
  6. RHEUMATREX [Suspect]
     Route: 049
  7. RHEUMATREX [Suspect]
     Route: 049
  8. RHEUMATREX [Suspect]
     Indication: RHEUMATOID ARTHRITIS
     Route: 049
  9. PREDNISOLONE [Concomitant]
     Indication: RHEUMATOID ARTHRITIS
     Route: 049
  10. NABOAL SR [Concomitant]
     Route: 049
  11. MOHRUS TAPE [Concomitant]
  12. FERROMIA [Concomitant]
     Route: 049
  13. MUCOSTA [Concomitant]
     Route: 049

REACTIONS (1)
  - ALVEOLITIS ALLERGIC [None]
